FAERS Safety Report 16281446 (Version 3)
Quarter: 2019Q2

REPORT INFORMATION
  Report Type: Spontaneous
  Country: US (occurrence: US)
  Receive Date: 20190507
  Receipt Date: 20190614
  Transmission Date: 20190711
  Serious: No
  Sender: FDA-Public Use
  Company Number: US-PFIZER INC-2019186018

PATIENT
  Sex: Female

DRUGS (1)
  1. ADVIL MULTI-SYMPTOM COLD AND FLU [Suspect]
     Active Substance: CHLORPHENIRAMINE MALEATE\IBUPROFEN\PHENYLEPHRINE HYDROCHLORIDE
     Indication: NASOPHARYNGITIS
     Dosage: UNK
     Dates: start: 201904, end: 201904

REACTIONS (1)
  - Drug ineffective [Unknown]

NARRATIVE: CASE EVENT DATE: 201904
